FAERS Safety Report 7440764-6 (Version None)
Quarter: 2011Q2

REPORT INFORMATION
  Report Type: 
  Country: None (occurrence: None)
  Receive Date: 20110427
  Receipt Date: 20110421
  Transmission Date: 20111010
  Serious: Yes (Hospitalization)
  Sender: FDA-Public Use
  Company Number: IT-PFIZER INC-2011086335

PATIENT
  Age: 78 Year
  Sex: Male

DRUGS (10)
  1. BISOPROLOL FUMARATE [Suspect]
     Indication: CARDIAC FAILURE
     Dosage: 2.5 MG, 2X/DAY
     Route: 048
     Dates: start: 20110321, end: 20110401
  2. PLAVIX [Concomitant]
  3. PANTORC [Concomitant]
     Dosage: 40 MG, UNK
  4. LASIX [Suspect]
     Indication: CARDIAC FAILURE
     Dosage: 25 MG, 3X/DAY
     Dates: start: 20110321
  5. ALLOPURINOL [Concomitant]
     Dosage: 150 MG, UNK
  6. KCL-RETARD [Suspect]
     Indication: CARDIAC FAILURE
     Dosage: 600 MG, 4 TIMES DAILY
     Route: 048
     Dates: start: 20110321, end: 20110401
  7. ASPIRIN [Concomitant]
  8. NORVASC [Suspect]
     Indication: CARDIAC FAILURE
     Dosage: 10 MG, 1X/DAY
     Route: 048
     Dates: start: 20110321, end: 20110401
  9. ALDACTONE [Suspect]
     Indication: CARDIAC FAILURE
     Dosage: 25 MG, 1X/DAY
     Route: 048
     Dates: start: 20110321, end: 20110401
  10. TRIATEC [Suspect]
     Indication: CARDIAC FAILURE
     Dosage: 5 MG, 2X/DAY
     Route: 048
     Dates: start: 20110321, end: 20110401

REACTIONS (3)
  - SINUS BRADYCARDIA [None]
  - RENAL FAILURE ACUTE [None]
  - HYPERKALAEMIA [None]
